FAERS Safety Report 23342812 (Version 1)
Quarter: 2023Q4

REPORT INFORMATION
  Report Type: Spontaneous
  Country: MY (occurrence: MY)
  Receive Date: 20231227
  Receipt Date: 20231227
  Transmission Date: 20240109
  Serious: Yes (Disabling)
  Sender: FDA-Public Use
  Company Number: MY-ELI_LILLY_AND_COMPANY-MY202312013183

PATIENT

DRUGS (1)
  1. GALCANEZUMAB [Suspect]
     Active Substance: GALCANEZUMAB
     Indication: Migraine
     Dosage: 120 MG, MONTHLY (1/M)
     Route: 065
     Dates: start: 20231121, end: 20231121

REACTIONS (2)
  - Hypokinesia [Not Recovered/Not Resolved]
  - Hypersensitivity [Not Recovered/Not Resolved]
